FAERS Safety Report 8281404-6 (Version None)
Quarter: 2012Q2

REPORT INFORMATION
  Report Type: 
  Country: None (occurrence: None)
  Receive Date: 20120410
  Receipt Date: 20120410
  Transmission Date: 20120825
  Serious: Yes (Other)
  Sender: FDA-Public Use
  Company Number: None

PATIENT
  Age: 82 Year
  Sex: Female
  Weight: 74.8435 kg

DRUGS (1)
  1. AVASTIN [Suspect]
     Indication: MACULE
     Dosage: SHOT FOR EYE EA 6 WEKS
     Dates: start: 20110401, end: 20111101

REACTIONS (5)
  - PRURITUS [None]
  - DIZZINESS [None]
  - HEART RATE INCREASED [None]
  - HYPERHIDROSIS [None]
  - IMPAIRED HEALING [None]
